FAERS Safety Report 12093255 (Version 1)
Quarter: 2016Q1

REPORT INFORMATION
  Report Type: Spontaneous
  Country: US (occurrence: None)
  Receive Date: 20160218
  Receipt Date: 20160218
  Transmission Date: 20160526
  Serious: Yes (Hospitalization)
  Sender: FDA-Public Use
  Company Number: None

PATIENT
  Age: 78 Year
  Sex: Male
  Weight: 76.6 kg

DRUGS (1)
  1. WARFARIN [Suspect]
     Active Substance: WARFARIN
     Indication: ATRIAL FIBRILLATION
     Dates: start: 20040820, end: 20160127

REACTIONS (5)
  - Septic shock [None]
  - Gastric haemorrhage [None]
  - Haemoglobin decreased [None]
  - International normalised ratio decreased [None]
  - Rectal abscess [None]

NARRATIVE: CASE EVENT DATE: 20160127
